FAERS Safety Report 5936872-9 (Version None)
Quarter: 2008Q4

REPORT INFORMATION
  Report Type: 
  Country: None (occurrence: None)
  Receive Date: 20081031
  Receipt Date: 20081026
  Transmission Date: 20090506
  Serious: Yes (Death)
  Sender: FDA-Public Use
  Company Number: CA-JNJFOC-20081006392

PATIENT

DRUGS (2)
  1. LEVAQUIN [Suspect]
     Indication: PNEUMONIA
     Route: 042
  2. CIPROFLAXACIN [Concomitant]
     Indication: PNEUMONIA
     Route: 065

REACTIONS (2)
  - DEATH [None]
  - DRUG RESISTANCE [None]
